FAERS Safety Report 11384616 (Version 1)
Quarter: 2015Q3

REPORT INFORMATION
  Report Type: Spontaneous
  Country: US (occurrence: US)
  Receive Date: 20150811
  Receipt Date: 20150811
  Transmission Date: 20151125
  Serious: No
  Sender: FDA-Public Use
  Company Number: US-ELI_LILLY_AND_COMPANY-US201105007659

PATIENT
  Age: 96 Year
  Sex: Female

DRUGS (2)
  1. ADCIRCA [Suspect]
     Active Substance: TADALAFIL
     Indication: PULMONARY HYPERTENSION
     Dosage: 20 MG, EACH EVENING
     Dates: start: 20110521
  2. DONEPEZIL. [Concomitant]
     Active Substance: DONEPEZIL
     Dosage: UNK
     Dates: start: 20110518

REACTIONS (2)
  - Asthenia [Unknown]
  - Abdominal discomfort [Unknown]

NARRATIVE: CASE EVENT DATE: 20110522
